FAERS Safety Report 7164995-8 (Version None)
Quarter: 2010Q4

REPORT INFORMATION
  Report Type: 
  Country: None (occurrence: None)
  Receive Date: 20101215
  Receipt Date: 20091214
  Transmission Date: 20110411
  Serious: No
  Sender: FDA-Public Use
  Company Number: US-AMGEN-TCS380467

PATIENT

DRUGS (2)
  1. ENBREL [Suspect]
     Indication: RHEUMATOID ARTHRITIS
     Dosage: 50 MG, QWK
     Route: 058
     Dates: start: 20091028
  2. METHOTREXATE [Concomitant]
     Dosage: 10 MG, QWK
     Route: 048

REACTIONS (5)
  - ASTHENIA [None]
  - BLOOD GLUCOSE INCREASED [None]
  - DIZZINESS [None]
  - HYPERHIDROSIS [None]
  - LARYNGITIS [None]
